FAERS Safety Report 12996676 (Version 1)
Quarter: 2016Q4

REPORT INFORMATION
  Report Type: Spontaneous
  Country: US (occurrence: US)
  Receive Date: 20161204
  Receipt Date: 20161204
  Transmission Date: 20170207
  Serious: No
  Sender: FDA-Public Use
  Company Number: US-009507513-1611USA013628

PATIENT
  Sex: Female

DRUGS (7)
  1. VITAMIN D [Concomitant]
     Active Substance: CHOLECALCIFEROL
  2. ZEPATIER [Suspect]
     Active Substance: ELBASVIR\GRAZOPREVIR
     Indication: HEPATITIS C
     Dosage: 1 TABLET, QD
     Route: 048
  3. ATIVAN [Concomitant]
     Active Substance: LORAZEPAM
  4. PRINIVIL [Concomitant]
     Active Substance: LISINOPRIL
     Route: 048
  5. BACLOFEN. [Concomitant]
     Active Substance: BACLOFEN
  6. SEROQUEL [Concomitant]
     Active Substance: QUETIAPINE FUMARATE
  7. ZOCOR [Concomitant]
     Active Substance: SIMVASTATIN
     Route: 048

REACTIONS (2)
  - Gastrointestinal disorder [Unknown]
  - Drug dose omission [Unknown]
